FAERS Safety Report 8471191-0 (Version None)
Quarter: 2012Q2

REPORT INFORMATION
  Report Type: 
  Country: None (occurrence: None)
  Receive Date: 20120627
  Receipt Date: 20120622
  Transmission Date: 20120825
  Serious: Yes (Other)
  Sender: FDA-Public Use
  Company Number: JP-PFIZER INC-2012151272

PATIENT
  Age: 68 Year
  Sex: Male

DRUGS (1)
  1. LYRICA [Suspect]
     Indication: PAIN
     Dosage: UNK
     Dates: start: 20120413

REACTIONS (4)
  - VISUAL ACUITY REDUCED [None]
  - VITREOUS FLOATERS [None]
  - VISUAL FIELD DEFECT [None]
  - CONDITION AGGRAVATED [None]
